FAERS Safety Report 7756257-2 (Version None)
Quarter: 2011Q3

REPORT INFORMATION
  Report Type: 
  Country: None (occurrence: None)
  Receive Date: 20110916
  Receipt Date: 20110908
  Transmission Date: 20111222
  Serious: No
  Sender: FDA-Public Use
  Company Number: US-ABBOTT-11P-163-0853016-00

PATIENT
  Sex: Female

DRUGS (1)
  1. TRILIPIX [Suspect]
     Indication: HYPERLIPIDAEMIA
     Dates: start: 20110801, end: 20110831

REACTIONS (7)
  - PYREXIA [None]
  - ASTHENIA [None]
  - NAUSEA [None]
  - MYALGIA [None]
  - HEADACHE [None]
  - CHROMATURIA [None]
  - LABORATORY TEST ABNORMAL [None]
